FAERS Safety Report 5066479-X (Version None)
Quarter: 2006Q3

REPORT INFORMATION
  Report Type: 
  Country: None (occurrence: None)
  Receive Date: 20060731
  Receipt Date: 20060731
  Transmission Date: 20061208
  Serious: Yes (Life-Threatening, Hospitalization)
  Sender: FDA-Public Use
  Company Number: None

PATIENT
  Age: 46 Year
  Sex: Female

DRUGS (10)
  1. GADODINAMIDE [Suspect]
     Indication: SCAN WITH CONTRAST
     Dosage: ONCE
  2. LASIX [Concomitant]
  3. FENTANYL [Concomitant]
  4. METOPROLOL [Concomitant]
  5. LOVENOX [Concomitant]
  6. SLIDING SCALE INSULIN [Concomitant]
  7. ATROVENT [Concomitant]
  8. ALBUTEROL SPIROS [Concomitant]
  9. NYSTATIN [Concomitant]
  10. VALIUM [Concomitant]

REACTIONS (2)
  - HAEMODIALYSIS [None]
  - RENAL FAILURE ACUTE [None]
